FAERS Safety Report 4342871-3 (Version None)
Quarter: 2004Q2

REPORT INFORMATION
  Report Type: 
  Country: None (occurrence: None)
  Receive Date: 20040416
  Receipt Date: 20031201
  Transmission Date: 20050107
  Serious: Yes (Other)
  Sender: FDA-Public Use
  Company Number: 805#1#2003-00045

PATIENT
  Age: 8 Day
  Sex: Male

DRUGS (6)
  1. ALPROSTADIL [Suspect]
     Indication: HEART DISEASE CONGENITAL
     Dosage: 100-200 NG/KG/MIN; INTRAVENOUS DRIP
     Route: 041
     Dates: start: 20030827, end: 20030828
  2. ALPROSTADIL [Suspect]
     Indication: HEART DISEASE CONGENITAL
     Dosage: 100-200 NG/KG/MIN; INTRAVENOUS DRIP
     Route: 041
     Dates: start: 20030903
  3. APROSTADIL (ALPROSTADIL) [Concomitant]
  4. DOPAMINE HYDROCHLORID (DOPAMINE HYDROCHLORIDE) [Concomitant]
  5. FUROSEMIDE (FOROSEMIDE [Concomitant]
  6. SPIRONOLACTONE [Concomitant]

REACTIONS (8)
  - ANURIA [None]
  - ARTERIAL STENOSIS [None]
  - CARDIAC FAILURE [None]
  - CONDITION AGGRAVATED [None]
  - EJECTION FRACTION DECREASED [None]
  - PATENT DUCTUS ARTERIOSUS [None]
  - POST PROCEDURAL COMPLICATION [None]
  - RENAL FAILURE [None]
